FAERS Safety Report 7850181-2 (Version None)
Quarter: 2011Q4

REPORT INFORMATION
  Report Type: 
  Country: None (occurrence: None)
  Receive Date: 20111026
  Receipt Date: 20111014
  Transmission Date: 20120403
  Serious: No
  Sender: FDA-Public Use
  Company Number: US-JNJFOC-20111008605

PATIENT
  Sex: Female
  Weight: 56.25 kg

DRUGS (16)
  1. WARFARIN SODIUM [Concomitant]
     Indication: ANTICOAGULANT THERAPY
     Dosage: DOSE VARIES
     Route: 048
     Dates: start: 20090101
  2. TYLENOL-500 [Concomitant]
     Indication: PAIN
     Dosage: AS NEEDED
     Route: 048
  3. SYNTHROID [Concomitant]
     Indication: THYROID DISORDER
     Route: 048
  4. COZAAR [Concomitant]
     Indication: HYPERTENSION
     Route: 048
  5. FENTANYL-100 [Suspect]
     Indication: PAIN
     Dosage: NDC NUMBER: 0781-7241-55
     Route: 062
     Dates: start: 20111014
  6. MIRALAX [Concomitant]
     Indication: PRODUCT USED FOR UNKNOWN INDICATION
     Route: 048
  7. SIMVASTATIN [Concomitant]
     Indication: BLOOD CHOLESTEROL INCREASED
     Route: 048
  8. AXID [Concomitant]
     Indication: GASTROOESOPHAGEAL REFLUX DISEASE
     Route: 048
  9. NORVASC [Concomitant]
     Indication: HYPERTENSION
     Route: 048
  10. CALCIUM CARBONATE [Concomitant]
     Indication: MEDICAL DIET
     Route: 048
  11. FENTANYL-100 [Suspect]
     Indication: SPINAL FRACTURE
     Dosage: NDC NUMBER: 0781-7241-55
     Route: 062
     Dates: start: 20111014
  12. MULTAQ [Concomitant]
     Indication: ATRIAL FIBRILLATION
     Route: 048
     Dates: start: 20100101
  13. TOPROL-XL [Concomitant]
     Indication: ATRIAL FIBRILLATION
     Route: 048
  14. VITAMIN D [Concomitant]
     Indication: MEDICAL DIET
     Route: 048
  15. LASIX [Concomitant]
     Indication: JOINT SWELLING
     Route: 048
     Dates: start: 20090101
  16. FORTEO [Concomitant]
     Indication: OSTEOPOROSIS
     Dosage: START DATE SPECIFIED AS: U-MAR-20.
     Route: 058

REACTIONS (3)
  - DRY MOUTH [None]
  - DRUG ADMINISTERED AT INAPPROPRIATE SITE [None]
  - PRODUCT QUALITY ISSUE [None]
